FAERS Safety Report 20041859 (Version 2)
Quarter: 2021Q4

REPORT INFORMATION
  Report Type: Spontaneous
  Country: JP (occurrence: JP)
  Receive Date: 20211108
  Receipt Date: 20211206
  Transmission Date: 20220303
  Serious: No
  Sender: FDA-Public Use
  Company Number: JP-JNJFOC-20211046624

PATIENT
  Age: 69 Year
  Sex: Female
  Weight: 55.1 kg

DRUGS (1)
  1. SIMPONI [Suspect]
     Active Substance: GOLIMUMAB
     Indication: Rheumatoid arthritis
     Dosage: STRENGTH 50.00 MG / 0.50 ML
     Route: 058

REACTIONS (5)
  - Device deployment issue [Recovered/Resolved]
  - Needle issue [Unknown]
  - Drug delivery system malfunction [Unknown]
  - Administration site pain [Recovered/Resolved]
  - Injury associated with device [Unknown]

NARRATIVE: CASE EVENT DATE: 20211020
